FAERS Safety Report 5609820-9 (Version None)
Quarter: 2008Q1

REPORT INFORMATION
  Report Type: 
  Country: None (occurrence: None)
  Receive Date: 20080131
  Receipt Date: 20071120
  Transmission Date: 20080703
  Serious: No
  Sender: FDA-Public Use
  Company Number: US-BAYER-200713868BCC

PATIENT
  Age: 71 Year
  Sex: Female
  Weight: 68 kg

DRUGS (4)
  1. ALEVE COLD AND SINUS [Suspect]
     Indication: NASOPHARYNGITIS
     Route: 048
     Dates: start: 20060101
  2. ALEVE COLD AND SINUS [Suspect]
     Route: 048
     Dates: start: 20071119
  3. HIGH BLOOD PRESSURE MEDICATION [Concomitant]
  4. VITAMINS [Concomitant]

REACTIONS (1)
  - INSOMNIA [None]
